FAERS Safety Report 11776421 (Version 3)
Quarter: 2016Q1

REPORT INFORMATION
  Report Type: Spontaneous
  Country: FR (occurrence: FR)
  Receive Date: 20151125
  Receipt Date: 20160203
  Transmission Date: 20160525
  Serious: Yes (Life-Threatening, Hospitalization, Other)
  Sender: FDA-Public Use
  Company Number: FR-009507513-1511FRA012656

PATIENT
  Age: 38 Year
  Sex: Male
  Weight: 71 kg

DRUGS (10)
  1. DIFFU-K [Concomitant]
     Active Substance: POTASSIUM CHLORIDE
  2. MOPRAL (OMEPRAZOLE) [Concomitant]
     Active Substance: OMEPRAZOLE SODIUM
  3. NOVORAPID [Concomitant]
     Active Substance: INSULIN ASPART
  4. DUROGESIC [Concomitant]
     Active Substance: FENTANYL
     Dosage: 50 UG/DAY
  5. PARACETAMOL [Concomitant]
     Active Substance: ACETAMINOPHEN
  6. KEYTRUDA [Suspect]
     Active Substance: PEMBROLIZUMAB
     Indication: MALIGNANT MELANOMA STAGE IV
     Dosage: 2 MG/KG, Q3W
     Route: 042
     Dates: start: 20151029, end: 20151029
  7. KEYTRUDA [Suspect]
     Active Substance: PEMBROLIZUMAB
     Dosage: 2 MG/KG, Q3W
     Route: 042
     Dates: start: 20151009, end: 20151009
  8. LANTUS [Concomitant]
     Active Substance: INSULIN GLARGINE
  9. SMECTA [Concomitant]
     Active Substance: MONTMORILLONITE
  10. CITALOPRAM [Concomitant]
     Active Substance: CITALOPRAM HYDROBROMIDE

REACTIONS (2)
  - Diabetic ketoacidotic hyperglycaemic coma [Recovering/Resolving]
  - Diabetic metabolic decompensation [Recovering/Resolving]

NARRATIVE: CASE EVENT DATE: 20151118
